FAERS Safety Report 4693384-0 (Version None)
Quarter: 2005Q2

REPORT INFORMATION
  Report Type: 
  Country: None (occurrence: None)
  Receive Date: 20050311
  Receipt Date: 20050311
  Transmission Date: 20051028
  Serious: Yes (Other)
  Sender: FDA-Public Use
  Company Number: None

PATIENT
  Sex: Male
  Weight: 95.2554 kg

DRUGS (2)
  1. PIROXICAM [Suspect]
     Indication: OSTEOARTHRITIS
     Dosage: TAKE 1 CAPSULE A DAY
  2. PIROXICAM [Suspect]
     Indication: SPONDYLITIS
     Dosage: TAKE 1 CAPSULE A DAY

REACTIONS (3)
  - DRUG INEFFECTIVE [None]
  - PAIN [None]
  - PHARMACEUTICAL PRODUCT COMPLAINT [None]
